FAERS Safety Report 14183337 (Version 1)
Quarter: 2017Q4

REPORT INFORMATION
  Report Type: Spontaneous
  Country: FR (occurrence: FR)
  Receive Date: 20171113
  Receipt Date: 20171113
  Transmission Date: 20180321
  Serious: Yes (Hospitalization, Other)
  Sender: FDA-Public Use
  Company Number: FR-JNJFOC-20171107749

PATIENT
  Age: 84 Year
  Sex: Male

DRUGS (1)
  1. ZYTIGA [Suspect]
     Active Substance: ABIRATERONE ACETATE
     Indication: PRODUCT USED FOR UNKNOWN INDICATION
     Route: 048
     Dates: start: 2015, end: 201706

REACTIONS (6)
  - Cognitive disorder [Recovering/Resolving]
  - General physical condition abnormal [Recovering/Resolving]
  - Balance disorder [Recovering/Resolving]
  - Blood pressure abnormal [Unknown]
  - Fall [Recovered/Resolved]
  - Mobility decreased [Recovering/Resolving]

NARRATIVE: CASE EVENT DATE: 20170312
